FAERS Safety Report 20584049 (Version 2)
Quarter: 2022Q1

REPORT INFORMATION
  Report Type: Spontaneous
  Country: CH (occurrence: CH)
  Receive Date: 20220311
  Receipt Date: 20220328
  Transmission Date: 20220423
  Serious: Yes (Hospitalization, Other)
  Sender: FDA-Public Use
  Company Number: CH-VERTEX PHARMACEUTICALS-2022-002179

PATIENT
  Age: 39 Year
  Sex: Male
  Weight: 62 kg

DRUGS (12)
  1. TRIKAFTA [Suspect]
     Active Substance: ELEXACAFTOR\IVACAFTOR\TEZACAFTOR
     Indication: Cystic fibrosis
     Dosage: 2 TABS IN AM AND 1 TAB IN PM
     Route: 048
     Dates: start: 20210425, end: 202107
  2. CREON FORTE [Concomitant]
     Dosage: 25000 (2-3-3)
  3. AZITHROMYCIN [Concomitant]
     Active Substance: AZITHROMYCIN
     Dosage: QD
  4. SYMBICORT [Concomitant]
     Active Substance: BUDESONIDE\FORMOTEROL FUMARATE DIHYDRATE
     Dosage: UNK, BID
  5. PULMOZYME [Concomitant]
     Active Substance: DORNASE ALFA
     Dosage: 2.5 MG/ 2.5 ML
  6. COLISTIN [Concomitant]
     Active Substance: COLISTIN
     Dosage: UNK, BID
  7. CAYSTON [Concomitant]
     Active Substance: AZTREONAM
     Dosage: UNK, TID
  8. NASONEX [Concomitant]
     Active Substance: MOMETASONE FUROATE
     Dosage: QD
  9. NOVORAPID [Concomitant]
     Active Substance: INSULIN ASPART
  10. TRESIBA [Concomitant]
     Active Substance: INSULIN DEGLUDEC
     Dosage: 100 U/ML
  11. MAGNESIUM ASPARTATE HYDROCHLORIDE [Concomitant]
     Active Substance: MAGNESIUM ASPARTATE HYDROCHLORIDE
  12. EMSER SALT [Concomitant]

REACTIONS (7)
  - Drug-induced liver injury [Recovering/Resolving]
  - Ureterolithiasis [Recovered/Resolved]
  - Nephrolithiasis [Recovered/Resolved]
  - Urine oxalate decreased [Unknown]
  - Pulmonary function test decreased [Recovering/Resolving]
  - Seminal vesicular disorder [Recovered/Resolved]
  - Prostatitis [Recovered/Resolved]

NARRATIVE: CASE EVENT DATE: 20210528
